FAERS Safety Report 24644208 (Version 2)
Quarter: 2024Q4

REPORT INFORMATION
  Report Type: Spontaneous
  Country: FR (occurrence: FR)
  Receive Date: 20241120
  Receipt Date: 20241218
  Transmission Date: 20250115
  Serious: Yes (Disabling, Other)
  Sender: TEVA
  Company Number: FR-TEVA-VS-3264168

PATIENT
  Age: 57 Year
  Sex: Male

DRUGS (16)
  1. FLUCONAZOLE [Suspect]
     Active Substance: FLUCONAZOLE
     Indication: Antibiotic therapy
     Route: 065
  2. TEDIZOLID [Suspect]
     Active Substance: TEDIZOLID
     Indication: Antibiotic therapy
     Route: 048
  3. TEDIZOLID [Suspect]
     Active Substance: TEDIZOLID
     Indication: Antibiotic therapy
     Route: 065
  4. AMIKACIN [Concomitant]
     Active Substance: AMIKACIN
     Indication: Postoperative care
     Dosage: 3 TIMES A WEEK
     Route: 042
  5. EPLERENONE [Concomitant]
     Active Substance: EPLERENONE
     Indication: Myocardial ischaemia
     Route: 065
  6. CLINDAMYCIN [Suspect]
     Active Substance: CLINDAMYCIN
     Indication: Antibiotic therapy
     Route: 065
  7. AVIBACTAM SODIUM\CEFTAZIDIME [Concomitant]
     Active Substance: AVIBACTAM SODIUM\CEFTAZIDIME
     Indication: Antibiotic therapy
     Dosage: MAINTENANCE THERAPY
     Route: 065
  8. CLOPIDOGREL [Concomitant]
     Active Substance: CLOPIDOGREL BISULFATE
     Indication: Myocardial ischaemia
     Route: 065
  9. VANCOMYCIN [Suspect]
     Active Substance: VANCOMYCIN
     Indication: Antibiotic therapy
     Route: 065
  10. LANSOPRAZOLE [Concomitant]
     Active Substance: LANSOPRAZOLE
     Indication: Myocardial ischaemia
     Route: 065
  11. BISOPROLOL [Concomitant]
     Active Substance: BISOPROLOL
     Indication: Myocardial ischaemia
     Route: 065
  12. MEROPENEM [Concomitant]
     Active Substance: MEROPENEM
     Indication: Postoperative care
     Route: 065
  13. COTRIMOXAZOLE [Suspect]
     Active Substance: SULFAMETHOXAZOLE\TRIMETHOPRIM
     Indication: Antibiotic therapy
     Route: 065
  14. CASPOFUNGIN [Concomitant]
     Active Substance: CASPOFUNGIN
     Indication: Postoperative care
     Route: 065
  15. CASPOFUNGIN [Concomitant]
     Active Substance: CASPOFUNGIN
     Indication: Postoperative care
     Route: 065
  16. RAMIPRIL [Concomitant]
     Active Substance: RAMIPRIL
     Indication: Myocardial ischaemia
     Route: 065

REACTIONS (8)
  - Optic neuropathy [Not Recovered/Not Resolved]
  - Blindness [Not Recovered/Not Resolved]
  - Visual impairment [Not Recovered/Not Resolved]
  - Bacteraemia [Unknown]
  - Fungaemia [Unknown]
  - Haemorrhage [Not Recovered/Not Resolved]
  - Hepatitis [Unknown]
  - Loss of personal independence in daily activities [Not Recovered/Not Resolved]
